FAERS Safety Report 4391731-0 (Version None)
Quarter: 2004Q3

REPORT INFORMATION
  Report Type: 
  Country: None (occurrence: None)
  Receive Date: 20040701
  Receipt Date: 20040619
  Transmission Date: 20050211
  Serious: Yes (Hospitalization)
  Sender: FDA-Public Use
  Company Number: 2004035481

PATIENT
  Age: 60 Year
  Sex: Male
  Weight: 92.5338 kg

DRUGS (3)
  1. VIAGRA [Suspect]
     Indication: ERECTILE DYSFUNCTION
     Dosage: 50 MG (50 MG, AS NEEDED), ORAL
     Route: 048
     Dates: end: 20040520
  2. SIMVASTATIN [Concomitant]
  3. LEVOTHYROXINE SODIM (LEVOTHYROXINE SODIUM) [Concomitant]

REACTIONS (2)
  - SUBARACHNOID HAEMORRHAGE [None]
  - SUBDURAL HAEMATOMA [None]
